FAERS Safety Report 8281579-9 (Version None)
Quarter: 2012Q2

REPORT INFORMATION
  Report Type: 
  Country: None (occurrence: None)
  Receive Date: 20120413
  Receipt Date: 20120411
  Transmission Date: 20120825
  Serious: Yes (Death, Hospitalization)
  Sender: FDA-Public Use
  Company Number: AU-B.I. PHARMACEUTICALS,INC./RIDGEFIELD-2012-AU-00628AU

PATIENT
  Sex: Male

DRUGS (9)
  1. ZOCOR [Concomitant]
     Dosage: 40 MG
     Route: 048
  2. CLINDAMYCIN [Concomitant]
     Dosage: 1200 MG
     Route: 048
  3. PERINDOPRIL ERBUMINE [Concomitant]
     Dosage: 5 MG
     Route: 048
  4. PANADOL OSTEO [Concomitant]
     Dosage: 3000 MG
     Route: 048
  5. VESICARE [Concomitant]
     Dosage: 10 MG
     Route: 048
  6. LASIX [Concomitant]
     Dosage: 40 MG
     Route: 048
  7. PRADAXA [Suspect]
     Dates: start: 20110928
  8. ELIGARD [Concomitant]
     Dosage: 0.2466 MG
  9. NEXIUM [Concomitant]
     Dosage: 40 MG
     Route: 048

REACTIONS (4)
  - INTRA-ABDOMINAL HAEMORRHAGE [None]
  - FALL [None]
  - ABDOMINAL DISTENSION [None]
  - ABDOMINAL PAIN [None]
